FAERS Safety Report 24145872 (Version 10)
Quarter: 2025Q1

REPORT INFORMATION
  Report Type: Spontaneous
  Country: CN (occurrence: CN)
  Receive Date: 20240729
  Receipt Date: 20250227
  Transmission Date: 20250408
  Serious: Yes (Life-Threatening, Hospitalization, Other)
  Sender: AMGEN
  Company Number: CN-AMGEN-CHNSP2024146945

PATIENT
  Age: 32 Year
  Sex: Female

DRUGS (18)
  1. UPLIZNA [Suspect]
     Active Substance: INEBILIZUMAB-CDON
     Indication: Neuromyelitis optica spectrum disorder
     Route: 040
     Dates: start: 20240718
  2. METHYLPREDNISOLONE [Suspect]
     Active Substance: METHYLPREDNISOLONE
     Indication: Product used for unknown indication
     Route: 040
  3. METHYLPREDNISOLONE [Suspect]
     Active Substance: METHYLPREDNISOLONE
     Route: 040
  4. METHYLPREDNISOLONE [Suspect]
     Active Substance: METHYLPREDNISOLONE
     Dosage: 100 MILLIGRAM, BID (IVGTT)
     Route: 040
  5. METHYLPREDNISOLONE [Suspect]
     Active Substance: METHYLPREDNISOLONE
     Route: 040
     Dates: start: 20240618, end: 20240620
  6. METHYLPREDNISOLONE [Suspect]
     Active Substance: METHYLPREDNISOLONE
     Route: 040
     Dates: start: 20240621, end: 20240623
  7. METHYLPREDNISOLONE [Suspect]
     Active Substance: METHYLPREDNISOLONE
     Route: 040
     Dates: start: 20240624, end: 20240626
  8. METHYLPREDNISOLONE [Suspect]
     Active Substance: METHYLPREDNISOLONE
     Route: 040
     Dates: start: 20240718
  9. METHYLPREDNISOLONE [Suspect]
     Active Substance: METHYLPREDNISOLONE
     Route: 040
     Dates: start: 20240721
  10. METHYLPREDNISOLONE [Suspect]
     Active Substance: METHYLPREDNISOLONE
     Dosage: 40 MILLIGRAM, BID (TWICE DAILY)
     Route: 040
     Dates: start: 20240721
  11. DIPHENHYDRAMINE [Suspect]
     Active Substance: DIPHENHYDRAMINE
     Indication: Product used for unknown indication
     Route: 030
     Dates: start: 20240718
  12. ACETAMINOPHEN [Suspect]
     Active Substance: ACETAMINOPHEN
     Indication: Product used for unknown indication
     Route: 048
     Dates: start: 20240718
  13. IMMUNE GLOBULIN NOS [Concomitant]
     Active Substance: IMMUNE GLOBULIN NOS
     Dosage: UNK UNK, QD (IVGTT QD 6 DAYS)
     Route: 040
  14. LEVOTHYROXINE [Concomitant]
     Active Substance: LEVOTHYROXINE
     Indication: Product used for unknown indication
     Dosage: UNK UNK, QD (125 UG)
     Route: 065
     Dates: start: 2024
  15. CARBAMAZEPINE [Concomitant]
     Active Substance: CARBAMAZEPINE
     Indication: Neuralgia
     Dosage: 0.1 GRAM, TID (ORALLY, AFTER BREAKFAST AND DINNER)
     Route: 065
     Dates: start: 20240619, end: 20240622
  16. PREDNISOLONE ACETATE [Concomitant]
     Active Substance: PREDNISOLONE ACETATE
     Indication: Product used for unknown indication
     Dosage: 60 MILLIGRAM, QD (PO, ONCE DAILY)
     Route: 048
     Dates: start: 20240630
  17. BERBERINE [Concomitant]
     Active Substance: BERBERINE
     Indication: Product used for unknown indication
     Dosage: 10 MILLIGRAM, QD (1 TABLET PER DAY ORALLY)
     Route: 048
     Dates: start: 20240719
  18. SODIUM CHLORIDE [Concomitant]
     Active Substance: SODIUM CHLORIDE
     Indication: Product used for unknown indication
     Route: 040
     Dates: start: 20240719

REACTIONS (23)
  - Drug eruption [Not Recovered/Not Resolved]
  - Neuromyelitis optica spectrum disorder [Unknown]
  - Dermatitis exfoliative generalised [Recovering/Resolving]
  - Infection [Recovered/Resolved]
  - Drug-induced liver injury [Recovered/Resolved]
  - Gastrointestinal ulcer [Unknown]
  - Skin necrosis [Recovering/Resolving]
  - Gastrointestinal mucosal necrosis [Recovering/Resolving]
  - Epidermolysis bullosa [Unknown]
  - Hepatic failure [Unknown]
  - Fungal infection [Unknown]
  - Hepatitis E antibody positive [Unknown]
  - Coagulopathy [Unknown]
  - Hyponatraemia [Unknown]
  - Hyperlipidaemia [Unknown]
  - Hypokalaemia [Unknown]
  - Hypocalcaemia [Unknown]
  - Hyperfibrinogenaemia [Unknown]
  - Pleural effusion [Unknown]
  - Pelvic fluid collection [Unknown]
  - Gastrooesophageal reflux disease [Unknown]
  - Skin infection [Unknown]
  - Sepsis [Unknown]

NARRATIVE: CASE EVENT DATE: 20240101
